FAERS Safety Report 17462151 (Version 1)
Quarter: 2020Q1

REPORT INFORMATION
  Report Type: Spontaneous
  Country: US (occurrence: US)
  Receive Date: 20200212
  Receipt Date: 20200212
  Transmission Date: 20200409
  Serious: Yes (Life-Threatening, Other)
  Sender: FDA-Public Use
  Company Number: None

PATIENT
  Age: 73 Year
  Sex: Male
  Weight: 107.95 kg

DRUGS (2)
  1. ALPRAZOLAM. [Suspect]
     Active Substance: ALPRAZOLAM
     Indication: ANXIETY
     Dosage: ?          QUANTITY:1-2 PRN;?
     Route: 048
     Dates: start: 201910
  2. ALPRAZOLAM. [Suspect]
     Active Substance: ALPRAZOLAM
     Indication: INSOMNIA
     Dosage: ?          QUANTITY:1-2 PRN;?
     Route: 048
     Dates: start: 201910

REACTIONS (7)
  - Muscle spasms [None]
  - Tremor [None]
  - Hallucination, visual [None]
  - Injury [None]
  - Tendon disorder [None]
  - Withdrawal syndrome [None]
  - Arthritis [None]
